FAERS Safety Report 19095846 (Version 3)
Quarter: 2021Q3

REPORT INFORMATION
  Report Type: Report from Study
  Country: None (occurrence: US)
  Receive Date: 20210406
  Receipt Date: 20210702
  Transmission Date: 20211014
  Serious: Yes (Other)
  Sender: FDA-Public Use
  Company Number: US-ABBVIE-21K-163-3801731-00

PATIENT
  Age: 85 Year
  Sex: Female
  Weight: 83.99 kg

DRUGS (5)
  1. HUMIRA [Suspect]
     Active Substance: ADALIMUMAB
     Dosage: CF
     Route: 058
     Dates: start: 20210310
  2. HYDROXYCHLOROQUINE [Concomitant]
     Active Substance: HYDROXYCHLOROQUINE
     Indication: RHEUMATOID ARTHRITIS
  3. COVID?19 VACCINE [Concomitant]
     Indication: COVID-19 IMMUNISATION
     Dosage: MODERNA
     Route: 030
     Dates: start: 20210320, end: 20210320
  4. HUMIRA [Suspect]
     Active Substance: ADALIMUMAB
     Indication: RHEUMATOID ARTHRITIS
     Dosage: CF
     Route: 058
     Dates: start: 20200325, end: 20210210
  5. METHOTREXATE. [Concomitant]
     Active Substance: METHOTREXATE
     Indication: RHEUMATOID ARTHRITIS

REACTIONS (2)
  - Musculoskeletal disorder [Not Recovered/Not Resolved]
  - Musculoskeletal disorder [Recovering/Resolving]

NARRATIVE: CASE EVENT DATE: 202012
